FAERS Safety Report 6545893-7 (Version None)
Quarter: 2010Q1

REPORT INFORMATION
  Report Type: 
  Country: None (occurrence: None)
  Receive Date: 20100121
  Receipt Date: 20091029
  Transmission Date: 20100710
  Serious: Yes (Hospitalization, Other)
  Sender: FDA-Public Use
  Company Number: CA-GENENTECH-292220

PATIENT
  Sex: Male
  Weight: 124.5 kg

DRUGS (9)
  1. XOLAIR [Suspect]
     Indication: ASTHMA
     Dosage: 300 MG, Q2W
     Route: 058
     Dates: start: 20050803
  2. XOLAIR [Suspect]
     Dosage: 300 MG, Q2W
     Route: 058
     Dates: start: 20091029
  3. SYMBICORT [Suspect]
     Indication: DRUG USE FOR UNKNOWN INDICATION
     Dosage: 200 A?G, 5 PUFFS BID
  4. SYMBICORT [Suspect]
     Dosage: 8 PUFF, UNK
  5. PULMICORT [Concomitant]
     Indication: DRUG USE FOR UNKNOWN INDICATION
  6. MICARDIS [Concomitant]
     Indication: DRUG USE FOR UNKNOWN INDICATION
  7. CELEBREX [Concomitant]
     Indication: DRUG USE FOR UNKNOWN INDICATION
  8. FOSAMAX [Concomitant]
     Indication: DRUG USE FOR UNKNOWN INDICATION
  9. VERAPAMIL [Concomitant]
     Indication: DRUG USE FOR UNKNOWN INDICATION

REACTIONS (10)
  - ASTHMA [None]
  - ATRIAL FIBRILLATION [None]
  - CARDIAC ABLATION [None]
  - DYSPNOEA [None]
  - HEART RATE IRREGULAR [None]
  - HYPOVENTILATION [None]
  - SINUSITIS [None]
  - TACHYCARDIA [None]
  - WEIGHT DECREASED [None]
  - WEIGHT INCREASED [None]
